FAERS Safety Report 16276355 (Version 1)
Quarter: 2019Q2

REPORT INFORMATION
  Report Type: Spontaneous
  Country: US (occurrence: US)
  Receive Date: 20190401
  Receipt Date: 20190401
  Transmission Date: 20190711
  Serious: No
  Sender: FDA-Public Use
  Company Number: None

PATIENT
  Age: 69 Year

DRUGS (1)
  1. SUTENT [Suspect]
     Active Substance: SUNITINIB MALATE
     Route: 048
     Dates: start: 201902, end: 201903

REACTIONS (4)
  - Mucosal inflammation [None]
  - Therapy cessation [None]
  - Palmar-plantar erythrodysaesthesia syndrome [None]
  - Rash [None]

NARRATIVE: CASE EVENT DATE: 20190329
